FAERS Safety Report 20052320 (Version 2)
Quarter: 2022Q2

REPORT INFORMATION
  Report Type: Spontaneous
  Country: US (occurrence: US)
  Receive Date: 20211110
  Receipt Date: 20220520
  Transmission Date: 20220721
  Serious: No
  Sender: FDA-Public Use
  Company Number: US-SANOFI-00840396

PATIENT
  Age: 53 Year
  Sex: Male

DRUGS (1)
  1. LANTUS SOLOSTAR [Suspect]
     Active Substance: INSULIN GLARGINE
     Indication: Type 2 diabetes mellitus
     Dosage: 20-30 UNITS DAILY ON A SLIDING SCALE
     Route: 065

REACTIONS (3)
  - Blood glucose increased [Unknown]
  - Incorrect dose administered by device [Unknown]
  - Device breakage [Unknown]
